FAERS Safety Report 6201496-5 (Version None)
Quarter: 2009Q2

REPORT INFORMATION
  Report Type: 
  Country: None (occurrence: None)
  Receive Date: 20090526
  Receipt Date: 20090521
  Transmission Date: 20091009
  Serious: Yes (Hospitalization)
  Sender: FDA-Public Use
  Company Number: BR-ROCHE-634284

PATIENT
  Sex: Female
  Weight: 50 kg

DRUGS (3)
  1. RIVOTRIL [Suspect]
     Indication: INSOMNIA
     Route: 048
     Dates: start: 20080101, end: 20080101
  2. RIVOTRIL [Suspect]
     Dosage: BATCH NUMBER: RJ0969; FORM: TABLET, STRENGTH: 2 MG/ TAB
     Route: 048
     Dates: start: 20090501
  3. FEMINA [Concomitant]
     Indication: CONTRACEPTION
     Dosage: FREQUENCY: DAILY

REACTIONS (2)
  - DRUG INEFFECTIVE [None]
  - ILL-DEFINED DISORDER [None]
